FAERS Safety Report 16091121 (Version 2)
Quarter: 2019Q2

REPORT INFORMATION
  Report Type: Spontaneous
  Country: ES (occurrence: ES)
  Receive Date: 20190319
  Receipt Date: 20190520
  Transmission Date: 20190711
  Serious: Yes (Other)
  Sender: FDA-Public Use
  Company Number: ES-BAYER-2019-022361

PATIENT
  Age: 55 Year
  Sex: Male

DRUGS (2)
  1. NEXAVAR [Suspect]
     Active Substance: SORAFENIB
     Indication: HEPATOCELLULAR CARCINOMA
     Dosage: 400 MG, BID
     Route: 048
  2. LOPERAMIDE [Concomitant]
     Active Substance: LOPERAMIDE
     Indication: DIARRHOEA

REACTIONS (9)
  - Abdominal mass [None]
  - Erythema [None]
  - Metastases to bone [None]
  - Hepatocellular carcinoma [None]
  - Synovial cyst [None]
  - General physical health deterioration [None]
  - Multiple organ dysfunction syndrome [None]
  - Pain [None]
  - Diarrhoea [None]
